FAERS Safety Report 4760429-9 (Version None)
Quarter: 2005Q3

REPORT INFORMATION
  Report Type: 
  Country: None (occurrence: None)
  Receive Date: 20050902
  Receipt Date: 20050629
  Transmission Date: 20060218
  Serious: Yes (Hospitalization, Disabling)
  Sender: FDA-Public Use
  Company Number: US-MERCK-0507USA00186

PATIENT
  Age: 54 Year
  Sex: Female
  Weight: 114 kg

DRUGS (7)
  1. VIOXX [Suspect]
     Indication: FIBROMYALGIA
     Route: 048
     Dates: start: 19991206, end: 20011130
  2. PREMARIN [Concomitant]
     Indication: HORMONE REPLACEMENT THERAPY
     Route: 065
     Dates: start: 19880101
  3. GLYBURIDE [Concomitant]
     Indication: DIABETES MELLITUS
     Route: 065
     Dates: start: 19990401
  4. GLUCOPHAGE [Concomitant]
     Route: 065
     Dates: start: 20010601
  5. MONOPRIL [Concomitant]
     Route: 065
     Dates: start: 19990101
  6. PAXIL [Concomitant]
     Route: 065
     Dates: start: 19990101
  7. DYAZIDE [Concomitant]
     Indication: BLOOD PRESSURE
     Route: 065

REACTIONS (5)
  - ADVERSE EVENT [None]
  - CEREBRAL INFARCTION [None]
  - CEREBROVASCULAR ACCIDENT [None]
  - EYE DISORDER [None]
  - ROAD TRAFFIC ACCIDENT [None]
